FAERS Safety Report 21507212 (Version 2)
Quarter: 2022Q4

REPORT INFORMATION
  Report Type: Report from Study
  Country: US (occurrence: None)
  Receive Date: 20221026
  Receipt Date: 20221104
  Transmission Date: 20230112
  Serious: Yes (Hospitalization)
  Sender: FDA-Public Use
  Company Number: US-ROCHE-3203369

PATIENT
  Age: 68 Year
  Sex: Male
  Weight: 71.3 kg

DRUGS (3)
  1. ATEZOLIZUMAB [Suspect]
     Active Substance: ATEZOLIZUMAB
     Indication: Colorectal cancer
     Dosage: ON 21/SEP/2022, MOST RECENT DOSE OF ATEZOLIZUMAB RECEIVED PRIOR TO ADVERSE EVENT ONSET.
     Route: 041
     Dates: start: 20220721, end: 20220921
  2. INVESTIGATIONAL PRODUCT [Suspect]
     Active Substance: INVESTIGATIONAL PRODUCT
     Indication: Colorectal cancer
     Dosage: ON 21/SEP/2022, MOST RECENT DOSE OF POLYPEPI1018 RECEIVED PRIOR TO ADVERSE EVENT ONSET.
     Route: 058
     Dates: start: 20220721
  3. INVESTIGATIONAL PRODUCT [Suspect]
     Active Substance: INVESTIGATIONAL PRODUCT
     Route: 058
     Dates: start: 20220921

REACTIONS (2)
  - Nausea [Recovering/Resolving]
  - Vomiting [Recovering/Resolving]

NARRATIVE: CASE EVENT DATE: 20221009
